FAERS Safety Report 9579508 (Version 1)
Quarter: 2013Q4

REPORT INFORMATION
  Report Type: Spontaneous
  Country: US (occurrence: US)
  Receive Date: 20131001
  Receipt Date: 20131001
  Transmission Date: 20140711
  Serious: No
  Sender: FDA-Public Use
  Company Number: US-AMGEN-USASP2013043570

PATIENT
  Age: 60 Year
  Sex: Female
  Weight: 90.7 kg

DRUGS (1)
  1. PROCRIT [Suspect]
     Indication: BREAST CANCER STAGE IV
     Dosage: UNK
     Route: 058
     Dates: start: 201303

REACTIONS (3)
  - Fatigue [Not Recovered/Not Resolved]
  - Injection site pain [Not Recovered/Not Resolved]
  - Myalgia [Not Recovered/Not Resolved]
